FAERS Safety Report 7691976-8 (Version None)
Quarter: 2011Q3

REPORT INFORMATION
  Report Type: 
  Country: None (occurrence: None)
  Receive Date: 20110818
  Receipt Date: 20110810
  Transmission Date: 20111222
  Serious: Yes (Hospitalization)
  Sender: FDA-Public Use
  Company Number: US-BAXTER-2011BH002359

PATIENT
  Age: 56 Year
  Sex: Female
  Weight: 66 kg

DRUGS (10)
  1. FLUOROURACIL [Suspect]
     Indication: CHEMOTHERAPY
     Route: 042
     Dates: start: 20110123
  2. PSYLLIUM HUSK [Concomitant]
     Indication: DIARRHOEA
     Route: 048
     Dates: start: 20110118
  3. FLUOROURACIL [Suspect]
     Indication: SQUAMOUS CELL CARCINOMA
     Route: 042
     Dates: start: 20110123
  4. MORPHINE [Concomitant]
     Indication: PAIN
     Route: 041
     Dates: start: 20110121
  5. PANTOPRAZOLE [Concomitant]
     Indication: PRODUCT USED FOR UNKNOWN INDICATION
     Route: 048
     Dates: start: 20110116
  6. SODIUM CHLORIDE 0.9% IN PLASTIC CONTAINER [Suspect]
     Indication: FLUID REPLACEMENT
     Route: 042
     Dates: start: 20110119
  7. DEXTROSE 5% [Suspect]
     Indication: MEDICATION DILUTION
     Route: 042
     Dates: start: 20110123
  8. HYDROCODONE [Concomitant]
     Indication: PAIN
     Route: 048
     Dates: start: 20110120
  9. ONDASETRON [Concomitant]
     Indication: PRODUCT USED FOR UNKNOWN INDICATION
     Route: 048
     Dates: start: 20110115, end: 20110123
  10. DEXAMETHASONE [Concomitant]
     Indication: PRODUCT USED FOR UNKNOWN INDICATION
     Route: 041
     Dates: start: 20110119, end: 20110123

REACTIONS (1)
  - INCORRECT DRUG ADMINISTRATION RATE [None]
